FAERS Safety Report 13878667 (Version 2)
Quarter: 2017Q3

REPORT INFORMATION
  Report Type: Report from Study
  Country: CN (occurrence: CN)
  Receive Date: 20170817
  Receipt Date: 20170912
  Transmission Date: 20171127
  Serious: Yes (Hospitalization, Other)
  Sender: FDA-Public Use
  Company Number: CN-BAYER-2017-147003

PATIENT
  Age: 49 Year
  Sex: Male

DRUGS (2)
  1. STIVARGA [Suspect]
     Active Substance: REGORAFENIB
     Indication: COLORECTAL CANCER
     Dosage: 160 MG, QD
     Route: 048
     Dates: start: 20170726, end: 201708
  2. STIVARGA [Suspect]
     Active Substance: REGORAFENIB
     Indication: COLORECTAL CANCER
     Dosage: UNK

REACTIONS (8)
  - Diarrhoea [None]
  - Gastric haemorrhage [None]
  - Hospitalisation [None]
  - Gastric haemorrhage [Recovering/Resolving]
  - Dysphonia [None]
  - Fatigue [None]
  - Abdominal pain upper [None]
  - Pain [None]

NARRATIVE: CASE EVENT DATE: 2017
